FAERS Safety Report 12340111 (Version 1)
Quarter: 2016Q2

REPORT INFORMATION
  Report Type: Spontaneous
  Country: US (occurrence: None)
  Receive Date: 20160505
  Receipt Date: 20160505
  Transmission Date: 20160815
  Serious: Yes (Death)
  Sender: FDA-Public Use
  Company Number: None

PATIENT
  Age: 75 Year
  Sex: Male
  Weight: 93 kg

DRUGS (1)
  1. INTRON A [Suspect]
     Active Substance: INTERFERON ALFA-2B
     Dosage: 182 MILLION IU
     Dates: end: 20140728

REACTIONS (3)
  - Pain in extremity [None]
  - Pulmonary thrombosis [None]
  - Peripheral swelling [None]

NARRATIVE: CASE EVENT DATE: 20141025
